FAERS Safety Report 12257325 (Version 1)
Quarter: 2016Q2

REPORT INFORMATION
  Report Type: Spontaneous
  Country: US (occurrence: None)
  Receive Date: 20160411
  Receipt Date: 20160411
  Transmission Date: 20160815
  Serious: Yes (Hospitalization)
  Sender: FDA-Public Use
  Company Number: None

PATIENT
  Age: 54 Year
  Sex: Male
  Weight: 78.47 kg

DRUGS (12)
  1. CENTRUM SILVER [Concomitant]
     Active Substance: MINERALS\VITAMINS
  2. FINOFIBRIC [Concomitant]
  3. CIPROFLOXACIN 500 MG. TABLETS COBALT } ACTAVIS } ALLERGEN [Suspect]
     Active Substance: CIPROFLOXACIN
     Indication: INFECTION
     Dosage: 500 MG 2 PILLS TWICE DAILY
     Route: 048
     Dates: start: 20160315, end: 20160319
  4. LEVOTHYROXINE. [Concomitant]
     Active Substance: LEVOTHYROXINE
  5. SEROQUEL [Concomitant]
     Active Substance: QUETIAPINE FUMARATE
  6. COQ10 [Concomitant]
     Active Substance: UBIDECARENONE
  7. LOSARTAN. [Concomitant]
     Active Substance: LOSARTAN
  8. LORAZEPAM. [Concomitant]
     Active Substance: LORAZEPAM
  9. CRESTOR [Concomitant]
     Active Substance: ROSUVASTATIN CALCIUM
  10. FISH OIL CONC. [Concomitant]
  11. ASPIRIN. [Concomitant]
     Active Substance: ASPIRIN
  12. VITAMIN D3 [Concomitant]
     Active Substance: CHOLECALCIFEROL

REACTIONS (4)
  - Loss of consciousness [None]
  - Vomiting [None]
  - Respiratory arrest [None]
  - Drug interaction [None]

NARRATIVE: CASE EVENT DATE: 20160317
